FAERS Safety Report 20115557 (Version 3)
Quarter: 2023Q4

REPORT INFORMATION
  Report Type: Spontaneous
  Country: GT (occurrence: GT)
  Receive Date: 20211126
  Receipt Date: 20231116
  Transmission Date: 20240110
  Serious: Yes (Death, Disabling)
  Sender: FDA-Public Use
  Company Number: GT-TOLMAR, INC.-21GT030232

PATIENT
  Age: 87 Year
  Sex: Male

DRUGS (3)
  1. ELIGARD [Suspect]
     Active Substance: LEUPROLIDE ACETATE
     Indication: Prostate cancer
     Dosage: 45 MILLIGRAM, Q 6 MONTH
     Route: 058
     Dates: start: 20210825, end: 20231020
  2. ELIGARD [Suspect]
     Active Substance: LEUPROLIDE ACETATE
     Dosage: 45 MILLIGRAM, Q 6 MONTH
     Route: 058
     Dates: start: 202211
  3. TEOPRIN [Concomitant]
     Indication: Product used for unknown indication
     Dosage: 50 MILLIGRAM, QD

REACTIONS (5)
  - Death [Fatal]
  - Gait inability [Not Recovered/Not Resolved]
  - Gait disturbance [Not Recovered/Not Resolved]
  - Pain in extremity [Not Recovered/Not Resolved]
  - Bone pain [Unknown]

NARRATIVE: CASE EVENT DATE: 20210830
